FAERS Safety Report 4990250-8 (Version None)
Quarter: 2006Q2

REPORT INFORMATION
  Report Type: 
  Country: None (occurrence: None)
  Receive Date: 20060503
  Receipt Date: 20040303
  Transmission Date: 20061013
  Serious: Yes (Other)
  Sender: FDA-Public Use
  Company Number: US-GLAXOSMITHKLINE-A0501027A

PATIENT
  Age: 66 Year
  Sex: Female

DRUGS (8)
  1. SEREVENT [Suspect]
     Indication: ASTHMA
     Route: 055
     Dates: start: 20031209, end: 20040205
  2. FLOVENT [Concomitant]
  3. VENTOLIN [Concomitant]
  4. VERAPAMIL [Concomitant]
  5. FUROSEMIDE [Concomitant]
  6. CLONIDINE [Concomitant]
  7. ALPRAZOLAM [Concomitant]
  8. HYDROCHLOROTHIAZIDE [Concomitant]

REACTIONS (12)
  - BLINDNESS [None]
  - CATARACT [None]
  - EYE PRURITUS [None]
  - EYE SWELLING [None]
  - GAIT DISTURBANCE [None]
  - LACRIMATION INCREASED [None]
  - MASTICATION DISORDER [None]
  - NERVOUSNESS [None]
  - OCULAR HYPERAEMIA [None]
  - RASH [None]
  - TOOTH FRACTURE [None]
  - WEIGHT DECREASED [None]
